FAERS Safety Report 6377780-1 (Version None)
Quarter: 2009Q3

REPORT INFORMATION
  Report Type: 
  Country: None (occurrence: None)
  Receive Date: 20090925
  Receipt Date: 20090915
  Transmission Date: 20100115
  Serious: Yes (Hospitalization, Other)
  Sender: FDA-Public Use
  Company Number: CH-ELI_LILLY_AND_COMPANY-CH200909003460

PATIENT
  Age: 29 Year
  Sex: Male

DRUGS (17)
  1. ZYPREXA [Suspect]
     Dosage: 20 MG, DAILY (1/D)
     Route: 048
     Dates: start: 20080815, end: 20080801
  2. ZYPREXA [Suspect]
     Dosage: 30 MG, DAILY (1/D)
     Route: 048
     Dates: start: 20080801
  3. ZYPREXA [Suspect]
     Dosage: 40 MG, DAILY (1/D)
     Route: 048
     Dates: start: 20080925
  4. TEMESTA [Concomitant]
     Dosage: 4 MG, DAILY (1/D)
     Route: 048
     Dates: start: 20080815, end: 20080828
  5. TEMESTA [Concomitant]
     Dosage: 7.5 MG, DAILY (1/D)
     Route: 048
     Dates: start: 20080829, end: 20080831
  6. TEMESTA [Concomitant]
     Dosage: 5 MG, DAILY (1/D)
     Route: 048
     Dates: start: 20080901, end: 20080916
  7. TEMESTA [Concomitant]
     Dosage: 1.25 MG, DAILY (1/D)
     Route: 048
     Dates: start: 20080917, end: 20080930
  8. CLOPIXOL ACUTARD [Concomitant]
     Dosage: UNK UNK, OTHER
     Route: 030
     Dates: start: 20080828
  9. PRAZINE [Concomitant]
     Dosage: 50 MG, DAILY (1/D)
     Route: 048
     Dates: start: 20080827
  10. PRAZINE [Concomitant]
     Dosage: 100 MG, DAILY (1/D)
     Route: 048
     Dates: start: 20080828
  11. BIPERIDEN HYDROCHLORIDE TAB [Concomitant]
     Dosage: 2 MG, UNK
     Route: 048
     Dates: start: 20080812
  12. BIPERIDEN HYDROCHLORIDE TAB [Concomitant]
     Dosage: 2.5 MG, UNK
     Route: 042
     Dates: start: 20080812
  13. BIPERIDEN HYDROCHLORIDE TAB [Concomitant]
     Dosage: 5 MG, UNK
     Route: 042
     Dates: start: 20080812
  14. BIPERIDEN HYDROCHLORIDE TAB [Concomitant]
     Dosage: 5 MG, UNK
     Route: 042
     Dates: start: 20080829
  15. BIPERIDEN HYDROCHLORIDE TAB [Concomitant]
     Dosage: 2 MG, UNK
     Route: 048
     Dates: start: 20080829
  16. BIPERIDEN HYDROCHLORIDE TAB [Concomitant]
     Dosage: 2.5 MG, UNK
     Route: 042
     Dates: start: 20080813
  17. RISPERIDONE [Concomitant]
     Dosage: 8 MG, UNK
     Route: 048
     Dates: start: 20080811, end: 20080812

REACTIONS (7)
  - AGGRESSION [None]
  - AKINESIA [None]
  - DYSKINESIA [None]
  - OROPHARYNGEAL SPASM [None]
  - OVERDOSE [None]
  - TENSION [None]
  - WEIGHT INCREASED [None]
